FAERS Safety Report 6153473-0 (Version None)
Quarter: 2009Q2

REPORT INFORMATION
  Report Type: 
  Country: None (occurrence: None)
  Receive Date: 20090409
  Receipt Date: 20090409
  Transmission Date: 20091009
  Serious: Yes (Life-Threatening, Hospitalization, Disabling)
  Sender: FDA-Public Use
  Company Number: None

PATIENT
  Sex: Female
  Weight: 63.5036 kg

DRUGS (9)
  1. ZOLPIDEM TARTRATE [Suspect]
     Indication: GENERALISED ANXIETY DISORDER
     Dosage: 1 - 5MG TAB  1 AT BEDTIME
     Dates: start: 20080608
  2. ZOLPIDEM TARTRATE [Suspect]
     Indication: INSOMNIA
     Dosage: 1 - 5MG TAB  1 AT BEDTIME
     Dates: start: 20080608
  3. ZOLPIDEM TARTRATE [Suspect]
     Indication: PANIC ATTACK
     Dosage: 1 - 5MG TAB  1 AT BEDTIME
     Dates: start: 20080608
  4. ZOLPIDEM TARTRATE [Suspect]
     Indication: GENERALISED ANXIETY DISORDER
     Dosage: 1 - 5MG TAB  1 AT BEDTIME
     Dates: start: 20080609
  5. ZOLPIDEM TARTRATE [Suspect]
     Indication: INSOMNIA
     Dosage: 1 - 5MG TAB  1 AT BEDTIME
     Dates: start: 20080609
  6. ZOLPIDEM TARTRATE [Suspect]
     Indication: PANIC ATTACK
     Dosage: 1 - 5MG TAB  1 AT BEDTIME
     Dates: start: 20080609
  7. ZOLPIDEM TARTRATE [Suspect]
     Indication: GENERALISED ANXIETY DISORDER
     Dosage: 1 - 5MG TAB  1 AT BEDTIME
     Dates: start: 20080610
  8. ZOLPIDEM TARTRATE [Suspect]
     Indication: INSOMNIA
     Dosage: 1 - 5MG TAB  1 AT BEDTIME
     Dates: start: 20080610
  9. ZOLPIDEM TARTRATE [Suspect]
     Indication: PANIC ATTACK
     Dosage: 1 - 5MG TAB  1 AT BEDTIME
     Dates: start: 20080610

REACTIONS (3)
  - AMNESIA [None]
  - LEGAL PROBLEM [None]
  - ROAD TRAFFIC ACCIDENT [None]
